FAERS Safety Report 16387860 (Version 1)
Quarter: 2019Q2

REPORT INFORMATION
  Report Type: Spontaneous
  Country: JP (occurrence: JP)
  Receive Date: 20190604
  Receipt Date: 20190604
  Transmission Date: 20190711
  Serious: Yes (Death, Other)
  Sender: FDA-Public Use
  Company Number: JP-ELI_LILLY_AND_COMPANY-JP201906000129

PATIENT

DRUGS (2)
  1. CYRAMZA [Suspect]
     Active Substance: RAMUCIRUMAB
     Indication: GASTRIC CANCER
     Route: 042
  2. PACLITAXEL. [Concomitant]
     Active Substance: PACLITAXEL
     Indication: GASTRIC CANCER
     Route: 042

REACTIONS (2)
  - Peritonitis [Unknown]
  - Gastrointestinal perforation [Fatal]
